FAERS Safety Report 7304398-6 (Version None)
Quarter: 2011Q1

REPORT INFORMATION
  Report Type: 
  Country: None (occurrence: None)
  Receive Date: 20110221
  Receipt Date: 20110208
  Transmission Date: 20110831
  Serious: Yes (Hospitalization)
  Sender: FDA-Public Use
  Company Number: FR-ELI_LILLY_AND_COMPANY-FR201102002218

PATIENT
  Sex: Male
  Weight: 44 kg

DRUGS (5)
  1. PEMETREXED [Suspect]
     Indication: NON-SMALL CELL LUNG CANCER
     Dosage: 770 MG, EVERY 3 WEEKS
     Route: 042
     Dates: start: 20100901
  2. CARBOPLATIN [Suspect]
     Indication: NON-SMALL CELL LUNG CANCER
     Dosage: 481.65 MG, ON DAY 1
     Route: 042
     Dates: start: 20100901
  3. ACTISKENAN [Concomitant]
     Indication: PAIN
     Dosage: 20 MG, UNK
     Route: 048
     Dates: start: 20100630
  4. NEXIUM [Concomitant]
     Indication: PROPHYLAXIS
     Dosage: 40 MG, UNK
     Route: 048
     Dates: start: 20101005
  5. DURAGESIC-100 [Concomitant]
     Indication: PAIN
     Dosage: 50 UG, EVERY 72 HOURS
     Route: 062
     Dates: start: 20100606

REACTIONS (4)
  - ODYNOPHAGIA [None]
  - ORAL CANDIDIASIS [None]
  - GENERAL PHYSICAL HEALTH DETERIORATION [None]
  - ASTHENIA [None]
